FAERS Safety Report 10362880 (Version 3)
Quarter: 2016Q1

REPORT INFORMATION
  Report Type: Spontaneous
  Country: JP (occurrence: JP)
  Receive Date: 20140805
  Receipt Date: 20160302
  Transmission Date: 20160525
  Serious: Yes (Hospitalization)
  Sender: FDA-Public Use
  Company Number: JP-OTSUKA-JP-2014-16186

PATIENT
  Age: 67 Year
  Sex: Female

DRUGS (4)
  1. SAMSCA [Suspect]
     Active Substance: TOLVAPTAN
     Dosage: 22.5 MG, UNK
     Route: 048
     Dates: start: 20150109
  2. SAMSCA [Suspect]
     Active Substance: TOLVAPTAN
     Indication: CONGENITAL CYSTIC KIDNEY DISEASE
     Dosage: 45 MG,DAILY DOSE
     Route: 048
     Dates: start: 20140705, end: 20140718
  3. BLOPRESS [Concomitant]
     Active Substance: CANDESARTAN CILEXETIL
     Indication: PRODUCT USED FOR UNKNOWN INDICATION
     Dosage: 12 MG, DAILY DOSE
     Route: 048
  4. METHYLDOPA. [Concomitant]
     Active Substance: METHYLDOPA
     Indication: PRODUCT USED FOR UNKNOWN INDICATION
     Dosage: 500 MG, DAILY DOSE
     Route: 048
     Dates: start: 20140704

REACTIONS (3)
  - Underdose [Unknown]
  - Hyponatraemia [Recovered/Resolved]
  - Thirst [Unknown]

NARRATIVE: CASE EVENT DATE: 20140719
